FAERS Safety Report 9197142 (Version 1)
Quarter: 2013Q1

REPORT INFORMATION
  Report Type: Spontaneous
  Country: ZA (occurrence: ZA)
  Receive Date: 20130328
  Receipt Date: 20130328
  Transmission Date: 20140127
  Serious: Yes (Other)
  Sender: FDA-Public Use
  Company Number: ZA-ROCHE-1207324

PATIENT
  Sex: Female

DRUGS (4)
  1. LUCENTIS [Suspect]
     Indication: AGE-RELATED MACULAR DEGENERATION
     Route: 050
     Dates: start: 20110313
  2. LUCENTIS [Suspect]
     Route: 050
     Dates: start: 20120829
  3. LUCENTIS [Suspect]
     Route: 050
     Dates: start: 20120926
  4. LUCENTIS [Suspect]
     Route: 050
     Dates: start: 20121024

REACTIONS (1)
  - Retinal oedema [Unknown]
